FAERS Safety Report 9752301 (Version 1)
Quarter: 2013Q4

REPORT INFORMATION
  Report Type: Spontaneous
  Country: US (occurrence: None)
  Receive Date: 20131212
  Receipt Date: 20131212
  Transmission Date: 20140711
  Serious: No
  Sender: FDA-Public Use
  Company Number: None

PATIENT
  Age: 27 Year
  Sex: Female
  Weight: 56.25 kg

DRUGS (1)
  1. PARAGARD [Suspect]
     Dosage: ONGOING FROM JULY 2013
     Dates: start: 201307

REACTIONS (5)
  - Premenstrual cramps [None]
  - Vaginal haemorrhage [None]
  - Menorrhagia [None]
  - Disturbance in attention [None]
  - Libido decreased [None]
